FAERS Safety Report 25146017 (Version 8)
Quarter: 2025Q2

REPORT INFORMATION
  Report Type: Report from Study
  Country: US (occurrence: US)
  Receive Date: 20250401
  Receipt Date: 20250605
  Transmission Date: 20250717
  Serious: Yes (Hospitalization, Other)
  Sender: JOHNSON AND JOHNSON
  Company Number: US-JNJFOC-20250386511

PATIENT
  Age: 78 Year
  Sex: Female
  Weight: 83.007 kg

DRUGS (4)
  1. VELETRI [Suspect]
     Active Substance: EPOPROSTENOL
     Indication: Pulmonary arterial hypertension
     Route: 042
  2. OPSUMIT [Concomitant]
     Active Substance: MACITENTAN
     Indication: Product used for unknown indication
  3. COUMADIN [Concomitant]
     Active Substance: WARFARIN SODIUM
     Indication: Product used for unknown indication
  4. DILTIAZEM [Concomitant]
     Active Substance: DILTIAZEM
     Indication: Product used for unknown indication

REACTIONS (14)
  - Device occlusion [Unknown]
  - Urinary tract infection [Unknown]
  - Surgery [Unknown]
  - Central venous catheterisation [Unknown]
  - Device alarm issue [Unknown]
  - Complication associated with device [Unknown]
  - Thrombosis in device [Unknown]
  - Device malfunction [Unknown]
  - Cerebrovascular accident [Unknown]
  - Asthenia [Unknown]
  - Underdose [Unknown]
  - Confusional state [Unknown]
  - Gait inability [Unknown]
  - Product administration interrupted [Unknown]

NARRATIVE: CASE EVENT DATE: 20250314
